FAERS Safety Report 4289273-6 (Version None)
Quarter: 2004Q1

REPORT INFORMATION
  Report Type: 
  Country: None (occurrence: None)
  Receive Date: 20040203
  Receipt Date: 19981028
  Transmission Date: 20041129
  Serious: Yes (Other)
  Sender: FDA-Public Use
  Company Number: 1998-122

PATIENT
  Age: 57 Year
  Sex: Female
  Weight: 52.1637 kg

DRUGS (3)
  1. DORYX [Suspect]
     Indication: SINUSITIS
     Dosage: 100 MG QD (ONCE) ORAL
     Route: 048
     Dates: start: 19981027, end: 19981027
  2. PREMARIN [Concomitant]
  3. PREVACID [Concomitant]

REACTIONS (3)
  - MICTURITION URGENCY [None]
  - URINARY TRACT DISORDER [None]
  - VASODILATATION [None]
